FAERS Safety Report 6617166-5 (Version None)
Quarter: 2010Q1

REPORT INFORMATION
  Report Type: 
  Country: None (occurrence: None)
  Receive Date: 20100307
  Receipt Date: 20081022
  Transmission Date: 20100710
  Serious: No
  Sender: FDA-Public Use
  Company Number: US-BAYER-200828246GPV

PATIENT
  Age: 30 Year
  Sex: Female

DRUGS (2)
  1. INTERFERON-BETA-1A [Suspect]
     Indication: MULTIPLE SCLEROSIS
     Route: 030
  2. HYDROXYCHLOROQUINE SULFATE [Concomitant]
     Indication: MULTIPLE SCLEROSIS
     Route: 048

REACTIONS (5)
  - BUTTERFLY RASH [None]
  - JOINT SWELLING [None]
  - PAIN [None]
  - PYREXIA [None]
  - SYSTEMIC LUPUS ERYTHEMATOSUS [None]
